FAERS Safety Report 21925783 (Version 2)
Quarter: 2023Q1

REPORT INFORMATION
  Report Type: Spontaneous
  Country: US (occurrence: None)
  Receive Date: 20230130
  Receipt Date: 20230306
  Transmission Date: 20230418
  Serious: Yes (Hospitalization, Other)
  Sender: FDA-Public Use
  Company Number: US-FARMAPROD-202301-0184

PATIENT
  Age: 74 Year
  Sex: Male

DRUGS (3)
  1. OXERVATE [Suspect]
     Active Substance: CENEGERMIN-BKBJ
     Indication: Neurotrophic keratopathy
     Route: 047
     Dates: start: 20221227
  2. OXERVATE [Suspect]
     Active Substance: CENEGERMIN-BKBJ
     Indication: Hypoaesthesia eye
  3. ARTIFICIAL TEARS [Concomitant]

REACTIONS (3)
  - Upper limb fracture [Unknown]
  - Ankle fracture [Unknown]
  - Eye pain [Unknown]

NARRATIVE: CASE EVENT DATE: 20230101
